FAERS Safety Report 9855876 (Version 1)
Quarter: 2014Q1

REPORT INFORMATION
  Report Type: Report from Study
  Country: US (occurrence: US)
  Receive Date: 20140130
  Receipt Date: 20140130
  Transmission Date: 20141002
  Serious: Yes (Death)
  Sender: FDA-Public Use
  Company Number: PHEH2014US001941

PATIENT
  Sex: Female

DRUGS (2)
  1. TOBI [Suspect]
     Dosage: 300 MG, BID, EVERY OTHER MONTH
     Route: 055
     Dates: start: 201111, end: 201312
  2. PULMOZYME [Concomitant]
     Dosage: UNK UKN, UNK

REACTIONS (1)
  - Death [Fatal]
